FAERS Safety Report 22174576 (Version 1)
Quarter: 2023Q2

REPORT INFORMATION
  Report Type: Spontaneous
  Country: US (occurrence: US)
  Receive Date: 20230405
  Receipt Date: 20230405
  Transmission Date: 20230721
  Serious: Yes (Hospitalization, Other)
  Sender: FDA-Public Use
  Company Number: ENDG23-01505

PATIENT
  Age: 52 Year
  Sex: Female
  Weight: 90.72 kg

DRUGS (3)
  1. PREDNISONE [Suspect]
     Active Substance: PREDNISONE
     Indication: Product used for unknown indication
     Dosage: UNK UNKNOWN, UNKNOWN (TAPERING OFF DOSES)
     Route: 065
     Dates: start: 202208, end: 202302
  2. INFLECTRA [Suspect]
     Active Substance: INFLIXIMAB-DYYB
     Indication: Pyoderma gangrenosum
     Dosage: 5 MG/KILO, ONCE EVERY 4WKS
     Route: 065
     Dates: start: 20220819, end: 202212
  3. INFLECTRA [Suspect]
     Active Substance: INFLIXIMAB-DYYB
     Indication: Crohn^s disease
     Dosage: 10 MG/KILO, ONCE EVERY 4WKS
     Route: 065
     Dates: start: 202212

REACTIONS (4)
  - Bronchopulmonary aspergillosis [Recovered/Resolved]
  - Confusional state [Recovered/Resolved]
  - Stoma site haemorrhage [Recovered/Resolved]
  - Pulmonary mass [Unknown]

NARRATIVE: CASE EVENT DATE: 20220901
